FAERS Safety Report 8509613-9 (Version None)
Quarter: 2012Q3

REPORT INFORMATION
  Report Type: 
  Country: None (occurrence: None)
  Receive Date: 20120713
  Receipt Date: 20120703
  Transmission Date: 20120928
  Serious: Yes (Hospitalization, Other)
  Sender: FDA-Public Use
  Company Number: US-JNJFOC-20120701984

PATIENT
  Sex: Male
  Weight: 70 kg

DRUGS (8)
  1. ABIRATERONE ACETATE [Suspect]
     Indication: PROSTATE CANCER METASTATIC
     Route: 048
     Dates: start: 20120621, end: 20120630
  2. ABIRATERONE ACETATE [Suspect]
     Route: 048
     Dates: start: 20111013
  3. POTASSIUM CHLORIDE [Concomitant]
     Route: 048
     Dates: start: 20120621
  4. VENOFER [Concomitant]
     Dosage: WEEKLY X 6 WEEKS
     Route: 042
     Dates: start: 20120525
  5. CIPROFLOXACIN [Concomitant]
     Route: 048
     Dates: start: 20120426
  6. PREDNISONE [Suspect]
     Indication: PROSTATE CANCER METASTATIC
     Route: 048
     Dates: start: 20111013
  7. PREDNISONE [Suspect]
     Route: 048
     Dates: start: 20120621, end: 20120630
  8. ZOLPIDEM [Concomitant]
     Route: 048
     Dates: start: 20111013

REACTIONS (3)
  - URETERIC STENOSIS [None]
  - NEPHRECTOMY [None]
  - HAEMATURIA [None]
